FAERS Safety Report 11167717 (Version 1)
Quarter: 2015Q2

REPORT INFORMATION
  Report Type: Spontaneous
  Country: US (occurrence: None)
  Receive Date: 20150604
  Receipt Date: 20150604
  Transmission Date: 20150821
  Serious: Yes (Other)
  Sender: FDA-Public Use
  Company Number: None

PATIENT
  Age: 66 Year
  Sex: Female
  Weight: 74.84 kg

DRUGS (5)
  1. MAXZIDE [Concomitant]
     Active Substance: HYDROCHLOROTHIAZIDE\TRIAMTERENE
  2. METHOCARBAMOL 750MG QUALITEST [Suspect]
     Active Substance: METHOCARBAMOL
     Indication: ARTHRITIS
     Dosage: 1 TID PRN  PRN/AS NEEDED ORAL
     Route: 048
     Dates: start: 20150527, end: 20150602
  3. ATORVASTATIN [Concomitant]
     Active Substance: ATORVASTATIN
  4. ALLOPURINOL. [Concomitant]
     Active Substance: ALLOPURINOL
  5. METHOCARBAMOL 750MG QUALITEST [Suspect]
     Active Substance: METHOCARBAMOL
     Indication: MUSCLE RELAXANT THERAPY
     Dosage: 1 TID PRN  PRN/AS NEEDED ORAL
     Route: 048
     Dates: start: 20150527, end: 20150602

REACTIONS (3)
  - Product quality issue [None]
  - Drug ineffective [None]
  - Product substitution issue [None]

NARRATIVE: CASE EVENT DATE: 20150602
